FAERS Safety Report 23737459 (Version 1)
Quarter: 2024Q2

REPORT INFORMATION
  Report Type: Spontaneous
  Country: US (occurrence: US)
  Receive Date: 20240412
  Receipt Date: 20240412
  Transmission Date: 20240716
  Serious: No
  Sender: FDA-Public Use
  Company Number: US-MYLANLABS-2024M1029351

PATIENT
  Sex: Female

DRUGS (1)
  1. CYCLOSPORINE [Suspect]
     Active Substance: CYCLOSPORINE
     Indication: Dry eye
     Dosage: UNK, BID (TWICE DAILY EVERY 12 HOURS)
     Route: 047

REACTIONS (3)
  - Eye irritation [Unknown]
  - Foreign body sensation in eyes [Unknown]
  - Hypersensitivity [Unknown]
